FAERS Safety Report 7234576-6 (Version None)
Quarter: 2011Q1

REPORT INFORMATION
  Report Type: 
  Country: None (occurrence: None)
  Receive Date: 20110120
  Receipt Date: 20110111
  Transmission Date: 20110831
  Serious: Yes (Hospitalization)
  Sender: FDA-Public Use
  Company Number: US-BIOGENIDEC-2009BI005203

PATIENT
  Age: 51 Year
  Sex: Female
  Weight: 74 kg

DRUGS (2)
  1. MEDICATIONS (NOS) [Concomitant]
     Indication: CONVULSION
  2. TYSABRI [Suspect]
     Indication: MULTIPLE SCLEROSIS
     Route: 042
     Dates: start: 20071115, end: 20100801

REACTIONS (14)
  - EYE INFECTION STAPHYLOCOCCAL [None]
  - COUGH [None]
  - FATIGUE [None]
  - MEMORY IMPAIRMENT [None]
  - CELLULITIS ORBITAL [None]
  - CELLULITIS [None]
  - NASOPHARYNGITIS [None]
  - RHINORRHOEA [None]
  - INFUSION SITE PAIN [None]
  - CHOKING SENSATION [None]
  - PAIN [None]
  - PURULENCE [None]
  - STAPHYLOCOCCAL INFECTION [None]
  - SINUSITIS [None]
